FAERS Safety Report 16956722 (Version 1)
Quarter: 2019Q4

REPORT INFORMATION
  Report Type: Spontaneous
  Country: US (occurrence: US)
  Receive Date: 20191023
  Receipt Date: 20191023
  Transmission Date: 20200122
  Serious: Yes (Other)
  Sender: FDA-Public Use
  Company Number: None

PATIENT
  Age: 81 Year
  Sex: Male
  Weight: 100.9 kg

DRUGS (1)
  1. TISAGENLECLEUCEL. [Suspect]
     Active Substance: TISAGENLECLEUCEL
     Indication: DIFFUSE LARGE B-CELL LYMPHOMA
     Dosage: ?          OTHER FREQUENCY:ONCE;?
     Route: 042
     Dates: start: 20190903, end: 20190903

REACTIONS (7)
  - Rash [None]
  - Cytokine release syndrome [None]
  - Neuropathy peripheral [None]
  - Lymphocyte adoptive therapy [None]
  - Atrial fibrillation [None]
  - Neurotoxicity [None]
  - Malignant melanoma [None]

NARRATIVE: CASE EVENT DATE: 20190905
